FAERS Safety Report 9291447 (Version 1)
Quarter: 2013Q2

REPORT INFORMATION
  Report Type: Spontaneous
  Country: US (occurrence: US)
  Receive Date: 20130515
  Receipt Date: 20130515
  Transmission Date: 20140414
  Serious: No
  Sender: FDA-Public Use
  Company Number: US-ASTRAZENECA-2004UW16347

PATIENT
  Age: 83 Year
  Sex: Female
  Weight: 81.6 kg

DRUGS (18)
  1. CRESTOR [Suspect]
     Indication: BLOOD CHOLESTEROL INCREASED
     Route: 048
     Dates: start: 2004
  2. CRESTOR [Suspect]
     Indication: BLOOD CHOLESTEROL INCREASED
     Route: 048
     Dates: start: 200807
  3. ZETIA [Suspect]
     Route: 065
     Dates: start: 2007
  4. LIPITOR [Suspect]
     Route: 065
  5. PRAVASTATIN [Suspect]
     Indication: BLOOD CHOLESTEROL ABNORMAL
     Route: 065
  6. ATENOLOL [Concomitant]
  7. LEVOXYL [Concomitant]
  8. ALLOPURINOL [Concomitant]
  9. ASPIRIN (LOW DOSE) [Concomitant]
     Indication: OSTEOPENIA
  10. ASPIRIN (LOW DOSE) [Concomitant]
     Indication: INTERVERTEBRAL DISC COMPRESSION
  11. CALCIUM [Concomitant]
     Indication: OSTEOPENIA
  12. CALCIUM [Concomitant]
     Indication: INTERVERTEBRAL DISC COMPRESSION
  13. ZOCOR [Concomitant]
  14. MEVACOR [Concomitant]
  15. PANTAPRAZOLE [Concomitant]
     Indication: GASTRIC DISORDER
  16. WARFARIN [Concomitant]
     Indication: CARDIOVASCULAR EVENT PROPHYLAXIS
  17. FUROSEMIDE [Concomitant]
     Indication: CARDIOVASCULAR EVENT PROPHYLAXIS
  18. FLUNISOLIDE [Concomitant]
     Indication: NASAL CONGESTION

REACTIONS (3)
  - Hyperhidrosis [Unknown]
  - Nasal congestion [Unknown]
  - Nausea [Unknown]
